FAERS Safety Report 6059220-5 (Version None)
Quarter: 2009Q1

REPORT INFORMATION
  Report Type: 
  Country: None (occurrence: None)
  Receive Date: 20090128
  Receipt Date: 20090128
  Transmission Date: 20090719
  Serious: Yes (Hospitalization)
  Sender: FDA-Public Use
  Company Number: None

PATIENT
  Age: 82 Year

DRUGS (1)
  1. HYDREA [Suspect]
     Dosage: 1000 MG Q 12 HRS PO
     Route: 048
     Dates: start: 20080701, end: 20080709

REACTIONS (1)
  - TUBULOINTERSTITIAL NEPHRITIS [None]
